FAERS Safety Report 6053339-0 (Version None)
Quarter: 2009Q1

REPORT INFORMATION
  Report Type: 
  Country: None (occurrence: None)
  Receive Date: 20090127
  Receipt Date: 20090123
  Transmission Date: 20090719
  Serious: Yes (Other)
  Sender: FDA-Public Use
  Company Number: B0555659A

PATIENT
  Sex: Male

DRUGS (12)
  1. VENTOLIN [Suspect]
     Indication: DRUG USE FOR UNKNOWN INDICATION
     Route: 055
  2. ERYTHROMYCIN [Concomitant]
     Route: 065
  3. AMBROXOL [Concomitant]
     Route: 048
  4. SINGULAIR [Concomitant]
     Route: 048
  5. DEPAS [Concomitant]
     Route: 048
  6. UNKNOWN DRUG [Concomitant]
     Route: 048
  7. ALPRAZOLAM [Concomitant]
     Route: 048
  8. GENINAX [Concomitant]
     Route: 048
  9. LOXONIN [Concomitant]
     Route: 062
  10. HOKUNALIN [Concomitant]
     Route: 062
  11. THEO SLOW [Concomitant]
     Route: 048
  12. BISOLVON [Concomitant]
     Route: 055

REACTIONS (1)
  - HALLUCINATION [None]
